FAERS Safety Report 7342183-X (Version None)
Quarter: 2011Q1

REPORT INFORMATION
  Report Type: 
  Country: None (occurrence: None)
  Receive Date: 20110309
  Receipt Date: 20110309
  Transmission Date: 20110831
  Serious: Yes (Other)
  Sender: FDA-Public Use
  Company Number: DE-ABBOTT-11P-062-0708878-00

PATIENT
  Sex: Female
  Weight: 65 kg

DRUGS (3)
  1. HUMIRA [Suspect]
     Dosage: 80MG LOADING DOSE
     Dates: start: 20100802
  2. HUMIRA [Suspect]
     Indication: CROHN'S DISEASE
     Dosage: 160MG LOADING DOSE
     Dates: start: 20100719
  3. HUMIRA [Suspect]
     Dates: start: 20100816, end: 20110101

REACTIONS (3)
  - NEOPLASM MALIGNANT [None]
  - LYMPHADENOPATHY [None]
  - PSEUDOLYMPHOMA [None]
